FAERS Safety Report 23761935 (Version 1)
Quarter: 2024Q2

REPORT INFORMATION
  Report Type: Report from Study
  Country: NL (occurrence: NL)
  Receive Date: 20240419
  Receipt Date: 20240419
  Transmission Date: 20240716
  Serious: Yes (Hospitalization, Other)
  Sender: FDA-Public Use
  Company Number: NL-ABBVIE-5576790

PATIENT
  Sex: Female

DRUGS (8)
  1. METHOTREXATE [Suspect]
     Active Substance: METHOTREXATE
     Indication: Crohn^s disease
     Route: 065
     Dates: start: 2005
  2. STELARA [Concomitant]
     Active Substance: USTEKINUMAB
     Indication: Product used for unknown indication
     Dosage: ROUTE OF ADMINISTRATION: INJECTION
     Route: 065
     Dates: start: 201908
  3. STELARA [Concomitant]
     Active Substance: USTEKINUMAB
     Indication: Product used for unknown indication
     Dosage: ROUTE OF ADMINISTRATION: INJECTION
     Route: 065
     Dates: start: 2020
  4. BUDESONIDE [Concomitant]
     Active Substance: BUDESONIDE
     Indication: Stenosis
     Route: 065
     Dates: start: 2019
  5. HUMIRA [Concomitant]
     Active Substance: ADALIMUMAB
     Indication: Crohn^s disease
     Route: 058
     Dates: start: 2014, end: 2016
  6. PREDNISONE [Concomitant]
     Active Substance: PREDNISONE
     Indication: Crohn^s disease
     Route: 065
     Dates: start: 2005
  7. INFLIXIMAB [Concomitant]
     Active Substance: INFLIXIMAB
     Indication: Crohn^s disease
     Route: 065
     Dates: start: 2005, end: 2005
  8. AZATHIOPRINE [Concomitant]
     Active Substance: AZATHIOPRINE
     Indication: Product used for unknown indication
     Route: 065
     Dates: start: 2014

REACTIONS (13)
  - Subileus [Unknown]
  - Sensory loss [Unknown]
  - Mental impairment [Unknown]
  - Crohn^s disease [Unknown]
  - Acute kidney injury [Unknown]
  - Ileal stenosis [Unknown]
  - Abdominal pain [Recovered/Resolved]
  - Faecal calprotectin increased [Unknown]
  - Abdominal pain [Unknown]
  - Stenosis [Unknown]
  - Maternal exposure during pregnancy [Unknown]
  - Abdominal pain [Unknown]
  - Ileal stenosis [Unknown]

NARRATIVE: CASE EVENT DATE: 20140101
